FAERS Safety Report 4313800-3 (Version None)
Quarter: 2004Q1

REPORT INFORMATION
  Report Type: 
  Country: None (occurrence: None)
  Receive Date: 20040304
  Receipt Date: 20031202
  Transmission Date: 20041129
  Serious: Yes (Other)
  Sender: FDA-Public Use
  Company Number: 2003121405

PATIENT
  Age: 43 Year
  Sex: Female

DRUGS (10)
  1. GEODON [Suspect]
     Indication: SCHIZOPHRENIA
     Dosage: 160 MG (DAILY), ORAL
     Route: 048
     Dates: end: 20031117
  2. HALOPERIDOL [Suspect]
     Indication: ILL-DEFINED DISORDER
     Dosage: 5 MG, ORAL
     Route: 048
     Dates: start: 20031101, end: 20031117
  3. QUETIAPINE FUMARATE (QUETIAPINE FUMARATE) [Suspect]
     Indication: SCHIZOPHRENIA
     Dosage: 1100 MG, ORAL
     Route: 048
  4. HYDROXINE EMBONATE (HYDROXYZINE EMBONATE) [Concomitant]
  5. GEMFIBROZIL [Concomitant]
  6. LORAZEPAM [Concomitant]
  7. LEVOTHYROXINE SODIUM [Concomitant]
  8. FERROUS SULFATE TAB [Concomitant]
  9. GABAPENTIN (GABAPENTIN) [Concomitant]
  10. NORDETTE (ETHINYLESTRADIOL, LEVONORGESTREL) [Concomitant]

REACTIONS (1)
  - ELECTROCARDIOGRAM QT CORRECTED INTERVAL PROLONGED [None]
